FAERS Safety Report 8247979-8 (Version None)
Quarter: 2012Q1

REPORT INFORMATION
  Report Type: 
  Country: None (occurrence: None)
  Receive Date: 20120330
  Receipt Date: 20120323
  Transmission Date: 20120608
  Serious: Yes (Hospitalization)
  Sender: FDA-Public Use
  Company Number: US-ACTELION-A-US2009-24397

PATIENT

DRUGS (2)
  1. TRACLEER [Suspect]
     Indication: PULMONARY ARTERIAL HYPERTENSION
     Route: 048
     Dates: start: 20081022
  2. CALCIUM CHANNEL BLOCKERS [Concomitant]

REACTIONS (3)
  - CELLULITIS [None]
  - OEDEMA PERIPHERAL [None]
  - DYSPNOEA [None]
